FAERS Safety Report 5788086-3 (Version None)
Quarter: 2008Q2

REPORT INFORMATION
  Report Type: 
  Country: None (occurrence: None)
  Receive Date: 20080625
  Receipt Date: 20080618
  Transmission Date: 20081010
  Serious: Yes (Death)
  Sender: FDA-Public Use
  Company Number: CO-SANOFI-SYNTHELABO-A01200806965

PATIENT
  Sex: Female

DRUGS (3)
  1. INTRAFER G [Concomitant]
     Indication: HAEMOGLOBIN DECREASED
     Dosage: 15 GTT
     Route: 048
     Dates: start: 20080513, end: 20080517
  2. OSCILLOCOCCINUM [Concomitant]
     Indication: UPPER RESPIRATORY TRACT INFECTION
     Dosage: 1 DF
     Route: 048
     Dates: start: 20080513, end: 20080513
  3. WINTOMYLON [Suspect]
     Indication: URINARY TRACT INFECTION
     Route: 048
     Dates: start: 20080513, end: 20080517

REACTIONS (5)
  - CRYING [None]
  - DEATH [None]
  - IRRITABILITY [None]
  - LOSS OF CONSCIOUSNESS [None]
  - POSTURE ABNORMAL [None]
